FAERS Safety Report 6360738-6 (Version None)
Quarter: 2009Q3

REPORT INFORMATION
  Report Type: 
  Country: None (occurrence: None)
  Receive Date: 20090918
  Receipt Date: 20090908
  Transmission Date: 20100115
  Serious: Yes (Other)
  Sender: FDA-Public Use
  Company Number: GR-JNJFOC-20090903048

PATIENT
  Age: 49 Year
  Sex: Female

DRUGS (3)
  1. REMICADE [Suspect]
     Indication: PSORIATIC ARTHROPATHY
     Route: 042
     Dates: start: 20080101
  2. METHOTREXATE [Suspect]
     Indication: PSORIATIC ARTHROPATHY
  3. CORTISONE [Suspect]
     Indication: PSORIATIC ARTHROPATHY

REACTIONS (1)
  - VOCAL CORD DISORDER [None]
